FAERS Safety Report 4501110-0 (Version None)
Quarter: 2004Q4

REPORT INFORMATION
  Report Type: 
  Country: None (occurrence: None)
  Receive Date: 20041109
  Receipt Date: 20041022
  Transmission Date: 20050328
  Serious: Yes (Hospitalization)
  Sender: FDA-Public Use
  Company Number: US_0409106160

PATIENT
  Age: 51 Year
  Sex: Male
  Weight: 114 kg

DRUGS (5)
  1. DULOXETINE HYDROCHLORIDE [Suspect]
     Indication: MAJOR DEPRESSION
     Dosage: 60 MG/ 1 DAY
     Dates: start: 20040918
  2. OXYCONTIN [Concomitant]
  3. ZANTAC [Concomitant]
  4. VICODIN [Concomitant]
  5. PROTONIX [Concomitant]

REACTIONS (3)
  - ACUTE MYOCARDIAL INFARCTION [None]
  - CORONARY ARTERY DISEASE [None]
  - CORONARY ARTERY OCCLUSION [None]
